FAERS Safety Report 11232836 (Version 3)
Quarter: 2018Q1

REPORT INFORMATION
  Report Type: Spontaneous
  Country: US (occurrence: US)
  Receive Date: 20150701
  Receipt Date: 20180326
  Transmission Date: 20180508
  Serious: Yes (Other)
  Sender: FDA-Public Use
  Company Number: US-PFIZER INC-2015214763

PATIENT
  Age: 62 Year
  Sex: Male

DRUGS (2)
  1. BENEFIX [Suspect]
     Active Substance: COAGULATION FACTOR IX RECOMBINANT HUMAN\ISOPROPYL ALCOHOL
     Indication: HAEMORRHAGE
     Dosage: 9000 IU, AS NEEDED
     Route: 041
     Dates: start: 20100101
  2. BENEFIX [Suspect]
     Active Substance: COAGULATION FACTOR IX RECOMBINANT HUMAN\ISOPROPYL ALCOHOL
     Indication: HAEMOPHILIA
     Dosage: 9000 IU, DAILY
     Route: 041
     Dates: start: 20180306, end: 20180316

REACTIONS (3)
  - Back disorder [Unknown]
  - Prostate cancer [Unknown]
  - Brain neoplasm [Unknown]
